FAERS Safety Report 16583528 (Version 1)
Quarter: 2019Q3

REPORT INFORMATION
  Report Type: Spontaneous
  Country: US (occurrence: US)
  Receive Date: 20190603
  Receipt Date: 20190603
  Transmission Date: 20191004
  Serious: Yes (Hospitalization, Disabling)
  Sender: FDA-Public Use
  Company Number: None

PATIENT
  Age: 64 Year
  Sex: Female
  Weight: 88.45 kg

DRUGS (15)
  1. BUSPIRONE [Concomitant]
     Active Substance: BUSPIRONE HYDROCHLORIDE
  2. MAGNESIUM [Concomitant]
     Active Substance: MAGNESIUM
  3. PROLIA [Suspect]
     Active Substance: DENOSUMAB
     Indication: OSTEOPOROSIS
     Dosage: EVERY 6 MONTHS;OTHER ROUTE:INJECTION SC?
     Route: 058
     Dates: start: 201304
  4. LEVOTHYROXINE. [Concomitant]
     Active Substance: LEVOTHYROXINE
  5. CELECOXIB. [Concomitant]
     Active Substance: CELECOXIB
  6. CALCIUM [Concomitant]
     Active Substance: CALCIUM
  7. MULTI-VITAMIN [Concomitant]
     Active Substance: .ALPHA.-TOCOPHEROL ACETATE, DL-\ASCORBIC ACID\CYANOCOBALAMIN\FLUORIDE ION\FOLIC ACID\NIACIN\PYRIDOXINE\RIBOFLAVIN\THIAMINE\VITAMIN A\VITAMIN D
  8. GABAPENTIN. [Concomitant]
     Active Substance: GABAPENTIN
  9. VIT D [Concomitant]
     Active Substance: VITAMIN D NOS
  10. FISH OIL [Concomitant]
     Active Substance: FISH OIL
  11. VITAMIN B COMPLEX [Concomitant]
     Active Substance: CYANOCOBALAMIN\DEXPANTHENOL\NIACINAMIDE\PYRIDOXINE HYDROCHLORIDE\RIBOFLAVIN 5^-PHOSPHATE SODIUM\THIAMINE HYDROCHLORIDE\VITAMIN B COMPLEX
  12. PROLIA [Concomitant]
     Active Substance: DENOSUMAB
  13. BUPROPION. [Concomitant]
     Active Substance: BUPROPION
  14. POTASSIUM [Concomitant]
     Active Substance: POTASSIUM
  15. CITALOPRAM [Concomitant]
     Active Substance: CITALOPRAM HYDROBROMIDE

REACTIONS (1)
  - Multiple fractures [None]

NARRATIVE: CASE EVENT DATE: 20181222
